FAERS Safety Report 12394749 (Version 1)
Quarter: 2016Q2

REPORT INFORMATION
  Report Type: Spontaneous
  Country: US (occurrence: US)
  Receive Date: 20160523
  Receipt Date: 20160523
  Transmission Date: 20160815
  Serious: No
  Sender: FDA-Public Use
  Company Number: US-NOVOPROD-472007

PATIENT
  Age: 39 Year
  Sex: Female

DRUGS (1)
  1. NORDITROPIN [Suspect]
     Active Substance: SOMATROPIN
     Indication: PRODUCT USED FOR UNKNOWN INDICATION
     Route: 058
     Dates: start: 20151027

REACTIONS (4)
  - Tachyphrenia [Unknown]
  - Myalgia [Unknown]
  - Feeling hot [Unknown]
  - Expired product administered [Unknown]

NARRATIVE: CASE EVENT DATE: 20151112
